FAERS Safety Report 8676435 (Version 3)
Quarter: 2012Q4

REPORT INFORMATION
  Report Type: Report from Study
  Country: US (occurrence: US)
  Receive Date: 20120720
  Receipt Date: 20121109
  Transmission Date: 20130627
  Serious: Yes (Death, Life-Threatening, Hospitalization)
  Sender: FDA-Public Use
  Company Number: US-009507513-1206USA05008

PATIENT
  Age: 50 Year
  Sex: Female

DRUGS (15)
  1. LOSARTAN POTASSIUM [Suspect]
     Indication: HYPERTENSION
     Dosage: UNK
     Route: 048
     Dates: start: 2008, end: 20120617
  2. GIMERACIL\OTERACIL POTASSIUM\TEGAFUR [Suspect]
     Indication: METASTATIC GASTRIC CANCER
     Route: 048
  3. CISPLATIN [Suspect]
     Indication: METASTATIC GASTRIC CANCER
     Route: 041
  4. ALPRAZOLAM [Concomitant]
     Indication: DEPRESSION
     Dosage: UNK
     Dates: start: 2008, end: 20120611
  5. FLUOXETINE HYDROCHLORIDE [Concomitant]
     Indication: DEPRESSION
     Dosage: UNK
     Dates: start: 2008, end: 20120612
  6. LORAZEPAM [Concomitant]
     Indication: DEPRESSION
     Dosage: UNK
     Dates: start: 20120612, end: 20120617
  7. NORTRIPTYLINE HYDROCHLORIDE [Concomitant]
     Indication: DEPRESSION
     Dosage: UNK
     Dates: start: 20120612, end: 20120617
  8. NUTRITIONAL SUPPLEMENTS [Concomitant]
     Indication: DECREASED APPETITE
     Dosage: UNK
     Dates: start: 20120511, end: 20120617
  9. OMEPRAZOLE [Concomitant]
     Indication: ABDOMINAL PAIN UPPER
     Dosage: UNK
     Dates: start: 20120531, end: 20120622
  10. DOMPERIDONE [Concomitant]
     Indication: NAUSEA
     Dosage: UNK
     Dates: start: 20120531, end: 20120622
  11. DOMPERIDONE [Concomitant]
     Indication: VOMITING
  12. METOCLOPRAMIDE [Concomitant]
     Indication: NAUSEA
     Dosage: UNK
     Dates: start: 20120612, end: 20120617
  13. METOCLOPRAMIDE [Concomitant]
     Indication: VOMITING
  14. ACETAMINOPHEN [Concomitant]
     Indication: PAIN
     Dosage: UNK
     Dates: start: 20120614, end: 20120614
  15. NUTRIDRINK [Concomitant]
     Indication: DECREASED APPETITE
     Dosage: UNK
     Dates: start: 20120625, end: 20120625

REACTIONS (2)
  - Renal failure acute [Fatal]
  - Back pain [Recovered/Resolved]
